FAERS Safety Report 4839712-4 (Version None)
Quarter: 2005Q4

REPORT INFORMATION
  Report Type: 
  Country: None (occurrence: None)
  Receive Date: 20051129
  Receipt Date: 20050705
  Transmission Date: 20060501
  Serious: No
  Sender: FDA-Public Use
  Company Number: US-GLAXOSMITHKLINE-A0564973A

PATIENT
  Sex: Female

DRUGS (10)
  1. BUPROPION HYDROCHLORIDE [Suspect]
     Indication: DEPRESSION
     Dosage: 450MG VARIABLE DOSE
     Route: 048
     Dates: start: 20050701
  2. WELLBUTRIN XL [Suspect]
     Indication: DEPRESSION
     Dosage: 450MG PER DAY
     Route: 048
     Dates: end: 20050630
  3. GABAPENTIN [Concomitant]
  4. ZOLOFT [Concomitant]
  5. BENICAR HCT [Concomitant]
  6. SEROQUEL [Concomitant]
  7. HUMALOG [Concomitant]
  8. VYTORIN [Concomitant]
  9. PREMPRO [Concomitant]
  10. VITAMIN E [Concomitant]

REACTIONS (10)
  - APHTHOUS STOMATITIS [None]
  - ASTHENIA [None]
  - BALANCE DISORDER [None]
  - DERMATITIS [None]
  - DIZZINESS [None]
  - DRY MOUTH [None]
  - DYSPHAGIA [None]
  - HEADACHE [None]
  - PHARYNGITIS STREPTOCOCCAL [None]
  - TREMOR [None]
